FAERS Safety Report 16229038 (Version 1)
Quarter: 2019Q2

REPORT INFORMATION
  Report Type: Spontaneous
  Country: US (occurrence: US)
  Receive Date: 20190319
  Receipt Date: 20190319
  Transmission Date: 20190711
  Serious: Yes (Other)
  Sender: FDA-Public Use
  Company Number: None

PATIENT
  Age: 78 Year
  Sex: Female
  Weight: 70.31 kg

DRUGS (11)
  1. VITAMIN B3 [Concomitant]
     Active Substance: NIACIN
  2. EYE DROPS [Concomitant]
     Active Substance: UNSPECIFIED INGREDIENT
  3. METROPROLOL [Concomitant]
     Active Substance: METOPROLOL
  4. TUMS 800 [Concomitant]
  5. DESITIN [Concomitant]
     Active Substance: ZINC OXIDE
  6. ESTRIOL VAG. CREAM [Concomitant]
  7. ELIQUIS [Concomitant]
     Active Substance: APIXABAN
  8. PROLIA [Suspect]
     Active Substance: DENOSUMAB
     Indication: OSTEOPOROSIS
     Dosage: INJECTION EVERY 6 MO
     Route: 058
  9. VALSARTAN. [Concomitant]
     Active Substance: VALSARTAN
  10. MULTI VITAMIN [Concomitant]
     Active Substance: VITAMINS
  11. LUTEIN [Concomitant]
     Active Substance: LUTEIN

REACTIONS (1)
  - Cystitis [None]

NARRATIVE: CASE EVENT DATE: 20181227
